FAERS Safety Report 8415720-1 (Version None)
Quarter: 2012Q2

REPORT INFORMATION
  Report Type: 
  Country: None (occurrence: None)
  Receive Date: 20120606
  Receipt Date: 20120529
  Transmission Date: 20120825
  Serious: Yes (Hospitalization)
  Sender: FDA-Public Use
  Company Number: CA-JNJFOC-20120520028

PATIENT
  Sex: Female

DRUGS (2)
  1. SIMPONI [Suspect]
     Indication: RHEUMATOID ARTHRITIS
     Route: 058
     Dates: start: 20100202
  2. METHOTREXATE [Suspect]
     Indication: PRODUCT USED FOR UNKNOWN INDICATION
     Route: 048
     Dates: start: 20120418

REACTIONS (7)
  - SOFT TISSUE INFECTION [None]
  - PYREXIA [None]
  - NAUSEA [None]
  - CHILLS [None]
  - DIARRHOEA [None]
  - SWELLING [None]
  - HERPES VIRUS INFECTION [None]
